FAERS Safety Report 10482134 (Version 1)
Quarter: 2014Q3

REPORT INFORMATION
  Report Type: Spontaneous
  Country: KR (occurrence: KR)
  Receive Date: 20140929
  Receipt Date: 20140929
  Transmission Date: 20150326
  Serious: Yes (Hospitalization, Other)
  Sender: FDA-Public Use
  Company Number: PHHY2014KR123824

PATIENT
  Age: 81 Year
  Sex: Female

DRUGS (2)
  1. ACETYLSALICYLIC ACID [Suspect]
     Active Substance: ASPIRIN
  2. NSAID^S [Interacting]
     Active Substance: UNSPECIFIED INGREDIENT

REACTIONS (4)
  - Drug interaction [Unknown]
  - Epistaxis [Unknown]
  - Coagulopathy [Unknown]
  - Haematoma [Unknown]
